FAERS Safety Report 6064207-2 (Version None)
Quarter: 2009Q1

REPORT INFORMATION
  Report Type: 
  Country: None (occurrence: None)
  Receive Date: 20090204
  Receipt Date: 20090202
  Transmission Date: 20090719
  Serious: Yes (Other)
  Sender: FDA-Public Use
  Company Number: NL-BRISTOL-MYERS SQUIBB COMPANY-14467526

PATIENT
  Age: 76 Year
  Sex: Female

DRUGS (5)
  1. CYCLOPHOSPHAMIDE [Suspect]
  2. VINCRISTINE SULFATE [Suspect]
  3. DOXORUBICIN HCL [Suspect]
  4. PREDNISOLONE [Suspect]
  5. RITUXIMAB [Suspect]
     Indication: NON-HODGKIN'S LYMPHOMA

REACTIONS (8)
  - DRUG TOXICITY [None]
  - INFLAMMATION [None]
  - INJECTION SITE EXTRAVASATION [None]
  - MUSCLE NECROSIS [None]
  - SKIN GRAFT [None]
  - SKIN LESION [None]
  - SKIN NECROSIS [None]
  - SKIN ULCER [None]
